FAERS Safety Report 5075138-9 (Version None)
Quarter: 2006Q3

REPORT INFORMATION
  Report Type: 
  Country: None (occurrence: None)
  Receive Date: 20060809
  Receipt Date: 20051007
  Transmission Date: 20061208
  Serious: No
  Sender: FDA-Public Use
  Company Number: US-AMGEN-US153568

PATIENT
  Sex: Female

DRUGS (13)
  1. EPOGEN [Suspect]
     Indication: DIALYSIS
     Route: 065
     Dates: start: 20010101
  2. NORTRIPTYLINE HCL [Concomitant]
     Route: 065
  3. GEMFIBROZIL [Concomitant]
     Route: 065
  4. NPH INSULIN [Concomitant]
     Route: 065
  5. GABAPENTIN [Concomitant]
     Route: 065
  6. LOVASTATIN [Concomitant]
     Route: 065
  7. PHOSLO [Concomitant]
     Route: 065
  8. AMITRIPTYLINE HCL [Concomitant]
     Route: 065
  9. METOPROLOL TARTRATE [Concomitant]
     Route: 065
  10. VICODIN [Concomitant]
     Route: 065
  11. LOMOTIL [Concomitant]
     Route: 065
  12. NEPHRO-CAPS [Concomitant]
     Route: 065
  13. IRON [Concomitant]
     Route: 065

REACTIONS (1)
  - THERAPEUTIC RESPONSE DECREASED [None]
